FAERS Safety Report 8504671-X (Version None)
Quarter: 2012Q3

REPORT INFORMATION
  Report Type: 
  Country: None (occurrence: None)
  Receive Date: 20120711
  Receipt Date: 20120707
  Transmission Date: 20120928
  Serious: Yes (Life-Threatening, Hospitalization)
  Sender: FDA-Public Use
  Company Number: US-ROCHE-1082287

PATIENT
  Sex: Female
  Weight: 82 kg

DRUGS (1)
  1. MABTHERA [Suspect]
     Indication: RHEUMATOID ARTHRITIS
     Dosage: LAST DOSE PRIOR TO SAE: 24/FEB/2012, DOSE 1000MG
     Route: 042
     Dates: start: 20071030

REACTIONS (1)
  - MYOCARDIAL INFARCTION [None]
